FAERS Safety Report 11167438 (Version 1)
Quarter: 2015Q2

REPORT INFORMATION
  Report Type: Spontaneous
  Country: FR (occurrence: FR)
  Receive Date: 20150605
  Receipt Date: 20150605
  Transmission Date: 20150821
  Serious: Yes (Hospitalization)
  Sender: FDA-Public Use
  Company Number: FR-UCBSA-2015017535

PATIENT
  Age: 0 Year
  Sex: Male
  Weight: 2.42 kg

DRUGS (6)
  1. KEPPRA [Suspect]
     Active Substance: LEVETIRACETAM
     Dosage: 3 G, ONCE DAILY (QD)
     Route: 064
     Dates: start: 2015, end: 20150429
  2. LAMICTAL [Suspect]
     Active Substance: LAMOTRIGINE
     Indication: EPILEPSY
     Dosage: 250 MG, DAILY
     Route: 064
     Dates: start: 20140813, end: 2015
  3. DEPAMIDE [Suspect]
     Active Substance: VALPROMIDE
     Indication: EPILEPSY
     Dosage: 150 MG, DAILY
     Route: 064
     Dates: start: 20140813, end: 20150429
  4. KEPPRA [Suspect]
     Active Substance: LEVETIRACETAM
     Indication: EPILEPSY
     Dosage: 2 G, DAILY
     Route: 064
     Dates: start: 20140813, end: 2015
  5. LAMICTAL [Suspect]
     Active Substance: LAMOTRIGINE
     Dosage: 300 MG, ONCE DAILY (QD)
     Route: 064
     Dates: start: 2015, end: 2015
  6. LAMICTAL [Suspect]
     Active Substance: LAMOTRIGINE
     Dosage: 200 MG, 2X/DAY (BID)
     Route: 064
     Dates: start: 2015, end: 20150429

REACTIONS (7)
  - Respiratory distress [Recovered/Resolved]
  - Vomiting [Recovered/Resolved]
  - Gastrointestinal disorder [Recovered/Resolved]
  - Low birth weight baby [Unknown]
  - Foetal exposure during pregnancy [Unknown]
  - Arrhythmia [Unknown]
  - Abdominal distension [Recovered/Resolved]

NARRATIVE: CASE EVENT DATE: 20140813
